FAERS Safety Report 9400470 (Version 2)
Quarter: 2013Q3

REPORT INFORMATION
  Report Type: Spontaneous
  Country: IT (occurrence: IT)
  Receive Date: 20130715
  Receipt Date: 20130731
  Transmission Date: 20140515
  Serious: Yes (Death)
  Sender: FDA-Public Use
  Company Number: PHHY2013IT074240

PATIENT
  Sex: Female

DRUGS (2)
  1. OXALIPLATIN SANDOZ [Suspect]
     Indication: RECTAL CANCER METASTATIC
     Dosage: 166 MG
     Route: 042
     Dates: start: 20130610, end: 20130710
  2. XELODA [Concomitant]
     Route: 048
     Dates: start: 20130611, end: 20130625

REACTIONS (6)
  - Cardiac arrest [Fatal]
  - Cyanosis [Fatal]
  - Loss of consciousness [Fatal]
  - Malaise [Fatal]
  - Anaphylactic reaction [Fatal]
  - Dyspnoea [Fatal]
